FAERS Safety Report 8578827-4 (Version None)
Quarter: 2012Q3

REPORT INFORMATION
  Report Type: 
  Country: None (occurrence: None)
  Receive Date: 20120808
  Receipt Date: 20120806
  Transmission Date: 20120928
  Serious: Yes (Disabling, Other)
  Sender: FDA-Public Use
  Company Number: TR-BAYER-2012-079978

PATIENT
  Sex: Female

DRUGS (9)
  1. VANCOMYCIN [Suspect]
     Indication: BACTERIAL INFECTION
  2. TRIMETHOPRIM + SULFAMETHOXAZOLE [Concomitant]
     Indication: BACTERIAL INFECTION
     Dosage: 5 MG/KG, BID
  3. NETILMICIN [Concomitant]
     Indication: PROPHYLAXIS
  4. PHENYTOIN [Concomitant]
     Indication: STATUS EPILEPTICUS
  5. TOPIRAMATE [Concomitant]
     Indication: STATUS EPILEPTICUS
  6. PENICILLIN G [Concomitant]
     Indication: PROPHYLAXIS
  7. CIPROFLOXACIN [Suspect]
     Indication: BACTERIAL INFECTION
     Dosage: 10 MG/KG, BID
     Route: 042
  8. PHENOBARBITAL TAB [Concomitant]
     Indication: STATUS EPILEPTICUS
  9. MEROPENEM [Concomitant]
     Indication: BACTERIAL INFECTION

REACTIONS (7)
  - BACTERIAL SEPSIS [None]
  - HYDROCEPHALUS [None]
  - DRUG RESISTANCE [None]
  - MENTAL RETARDATION [None]
  - MENINGITIS BACTERIAL [None]
  - MOTOR DYSFUNCTION [None]
  - DEAFNESS [None]
